FAERS Safety Report 5026249-5 (Version None)
Quarter: 2006Q2

REPORT INFORMATION
  Report Type: 
  Country: None (occurrence: None)
  Receive Date: 20060614
  Receipt Date: 20060608
  Transmission Date: 20061013
  Serious: Yes (Hospitalization)
  Sender: FDA-Public Use
  Company Number: US-ABBOTT-06P-163-0335473-00

PATIENT
  Sex: Female
  Weight: 45.4 kg

DRUGS (4)
  1. BIAXIN [Suspect]
     Indication: BRONCHITIS
     Route: 048
     Dates: start: 20060430, end: 20060430
  2. CLARITHROMYCIN 500MG TABLETS [Suspect]
     Indication: BRONCHITIS
     Route: 048
     Dates: start: 20060501, end: 20060501
  3. RAMIPRIL [Concomitant]
     Indication: BLOOD PRESSURE
     Route: 048
  4. VERAPAMIL [Concomitant]
     Indication: BLOOD PRESSURE
     Route: 048

REACTIONS (6)
  - CHEST DISCOMFORT [None]
  - DRUG HYPERSENSITIVITY [None]
  - DYSGEUSIA [None]
  - DYSPNOEA [None]
  - FEELING ABNORMAL [None]
  - HEART RATE INCREASED [None]
